FAERS Safety Report 9861648 (Version 2)
Quarter: 2014Q2

REPORT INFORMATION
  Report Type: Spontaneous
  Country: US (occurrence: US)
  Receive Date: 20140203
  Receipt Date: 20140401
  Transmission Date: 20141212
  Serious: Yes (Hospitalization)
  Sender: FDA-Public Use
  Company Number: US-BEH-2014040344

PATIENT
  Sex: Male

DRUGS (1)
  1. BERINERT P [Suspect]

REACTIONS (3)
  - Device related infection [Unknown]
  - Malaise [Unknown]
  - Swelling [Unknown]
